FAERS Safety Report 9711004 (Version 1)
Quarter: 2013Q4

REPORT INFORMATION
  Report Type: Spontaneous
  Country: US (occurrence: US)
  Receive Date: 20131126
  Receipt Date: 20131126
  Transmission Date: 20140711
  Serious: No
  Sender: FDA-Public Use
  Company Number: US-BRISTOL-MYERS SQUIBB COMPANY-19128008

PATIENT
  Age: 70 Year
  Sex: Female
  Weight: 72.56 kg

DRUGS (10)
  1. BYETTA PEN DISPOSABLE [Suspect]
     Dates: start: 20130710
  2. METFORMIN HCL [Suspect]
  3. FERROUS SULFATE [Concomitant]
  4. CLONIDINE [Concomitant]
  5. LISINOPRIL + HCTZ [Concomitant]
     Dosage: 20/25 MG
  6. CARVEDILOL [Concomitant]
  7. LEVOTHYROXINE [Concomitant]
  8. CLOPIDOGREL BISULFATE [Concomitant]
  9. PRAVASTATIN SODIUM [Concomitant]
  10. PANTOPRAZOLE [Concomitant]

REACTIONS (1)
  - Blood glucose increased [Not Recovered/Not Resolved]
